FAERS Safety Report 16683533 (Version 1)
Quarter: 2019Q3

REPORT INFORMATION
  Report Type: Spontaneous
  Country: US (occurrence: US)
  Receive Date: 20190808
  Receipt Date: 20190808
  Transmission Date: 20191004
  Serious: No
  Sender: FDA-Public Use
  Company Number: US-ALLERGAN-1854462US

PATIENT
  Age: 67 Year
  Sex: Male
  Weight: 83.9 kg

DRUGS (7)
  1. ANDRODERM [Suspect]
     Active Substance: TESTOSTERONE
     Indication: ERECTILE DYSFUNCTION
  2. METOPROLOL. [Concomitant]
     Active Substance: METOPROLOL
     Indication: ATRIAL FIBRILLATION
     Route: 048
  3. CIALIS [Concomitant]
     Active Substance: TADALAFIL
     Indication: PRODUCT USED FOR UNKNOWN INDICATION
     Route: 048
  4. WARFARIN [Concomitant]
     Active Substance: WARFARIN
     Indication: PRODUCT USED FOR UNKNOWN INDICATION
     Route: 048
  5. ANDRODERM [Suspect]
     Active Substance: TESTOSTERONE
     Indication: BLOOD TESTOSTERONE DECREASED
     Dosage: 1 DF, QD (CHANGING PATCH SITES)
     Route: 062
     Dates: start: 20180911, end: 20181020
  6. ZETIA [Concomitant]
     Active Substance: EZETIMIBE
     Indication: BLOOD CHOLESTEROL
     Route: 048
  7. TESTOSTERONE. [Concomitant]
     Active Substance: TESTOSTERONE
     Indication: BLOOD TESTOSTERONE DECREASED
     Dosage: ONCE A MONTH
     Route: 065

REACTIONS (7)
  - Depression [Unknown]
  - Application site pruritus [Recovered/Resolved]
  - Back pain [Unknown]
  - Application site vesicles [Recovering/Resolving]
  - Headache [Unknown]
  - Application site pain [Recovered/Resolved]
  - Product adhesion issue [Unknown]

NARRATIVE: CASE EVENT DATE: 20180911
